FAERS Safety Report 10175463 (Version 1)
Quarter: 2014Q2

REPORT INFORMATION
  Report Type: Report from Study
  Country: US (occurrence: US)
  Receive Date: 20140515
  Receipt Date: 20140515
  Transmission Date: 20141212
  Serious: Yes (Hospitalization)
  Sender: FDA-Public Use
  Company Number: US-ABBVIE-14P-163-1235720-00

PATIENT
  Sex: Female
  Weight: 69.01 kg

DRUGS (8)
  1. HUMIRA [Suspect]
     Indication: COLITIS ULCERATIVE
     Dates: start: 201402, end: 20140302
  2. NEXIUM [Concomitant]
     Indication: GASTROOESOPHAGEAL REFLUX DISEASE
  3. IRON [Concomitant]
     Indication: MINERAL SUPPLEMENTATION
  4. LISINOPRIL [Concomitant]
     Indication: HYPERTENSION
  5. AMLODIPINE [Concomitant]
     Indication: HYPERTENSION
  6. WARFARIN [Concomitant]
     Indication: ANTICOAGULANT THERAPY
  7. XARELTO [Concomitant]
     Indication: ANTICOAGULANT THERAPY
  8. PREDNISONE [Concomitant]
     Indication: COLITIS ULCERATIVE

REACTIONS (3)
  - Electrolyte imbalance [Recovered/Resolved]
  - Diarrhoea [Recovered/Resolved]
  - Haematochezia [Recovered/Resolved]
